FAERS Safety Report 9656040 (Version 2)
Quarter: 2013Q4

REPORT INFORMATION
  Report Type: Spontaneous
  Country: JP (occurrence: JP)
  Receive Date: 20131030
  Receipt Date: 20131223
  Transmission Date: 20140711
  Serious: Yes (Hospitalization)
  Sender: FDA-Public Use
  Company Number: JP-JNJFOC-20131016020

PATIENT
  Age: 27 Year
  Sex: Female

DRUGS (2)
  1. ORTHO M-21 [Suspect]
     Indication: PRODUCT USED FOR UNKNOWN INDICATION
     Route: 048
  2. ETHINYLESTRADIOL/NORETHINDRONE [Suspect]
     Indication: ENDOMETRIOSIS
     Route: 065

REACTIONS (1)
  - Cerebral infarction [Recovering/Resolving]
